FAERS Safety Report 8573560-7 (Version None)
Quarter: 2012Q3

REPORT INFORMATION
  Report Type: 
  Country: None (occurrence: None)
  Receive Date: 20120806
  Receipt Date: 20120803
  Transmission Date: 20120928
  Serious: Yes (Hospitalization)
  Sender: FDA-Public Use
  Company Number: FR-BRISTOL-MYERS SQUIBB COMPANY-16587016

PATIENT
  Age: 60 Year
  Sex: Male
  Weight: 65 kg

DRUGS (3)
  1. FLUOROURACIL [Suspect]
     Indication: HEAD AND NECK CANCER
     Dosage: 600MG/M2 5 CYCLE
     Dates: start: 20110307, end: 20110422
  2. CISPLATIN [Suspect]
     Indication: HEAD AND NECK CANCER
     Dosage: 129MG*1CYCLE
     Dates: start: 20110307, end: 20110418
  3. DOCETAXEL [Suspect]
     Indication: HEAD AND NECK CANCER
     Dosage: 130MG*1CYCLE
     Dates: start: 20110307, end: 20110418

REACTIONS (2)
  - DERMATITIS [None]
  - MUCOSAL INFLAMMATION [None]
